FAERS Safety Report 8942583 (Version 1)
Quarter: 2012Q4

REPORT INFORMATION
  Report Type: Report from Study
  Country: JP (occurrence: JP)
  Receive Date: 20121204
  Receipt Date: 20121204
  Transmission Date: 20130627
  Serious: Yes (Other)
  Sender: FDA-Public Use
  Company Number: JP-VERTEX PHARMACEUTICALS INC.-2012-025473

PATIENT
  Age: 25 Year
  Sex: Female

DRUGS (8)
  1. VX-950 (TELAPREVIR) [Suspect]
     Indication: CHRONIC HEPATITIS C
     Dosage: 1500 mg, qd
     Route: 048
     Dates: start: 20120822, end: 20121113
  2. RIBAVIRIN [Suspect]
     Indication: CHRONIC HEPATITIS C
     Dosage: 800 mg, qd
     Route: 048
     Dates: start: 20120822
  3. PEGINTERFERON ALFA-2B [Concomitant]
     Dosage: 1.5 UNK, qw
     Route: 058
     Dates: start: 20120822
  4. LIVALO [Concomitant]
     Dosage: 2 mg, qd
     Route: 048
  5. EPADEL                             /01682401/ [Concomitant]
     Dosage: 1800 mg, qd
     Route: 048
  6. CLARITIN REDITABS [Concomitant]
     Dosage: 10 mg, qd
     Route: 048
  7. FEROTYM [Concomitant]
     Dosage: 50 mg, qd
     Route: 048
  8. MIYA-BM [Concomitant]
     Dosage: 3 g, qd
     Route: 048

REACTIONS (3)
  - Rash [Recovered/Resolved]
  - Anaemia [Not Recovered/Not Resolved]
  - Anaemia [Not Recovered/Not Resolved]
